FAERS Safety Report 11943391 (Version 1)
Quarter: 2016Q1

REPORT INFORMATION
  Report Type: Spontaneous
  Country: US (occurrence: US)
  Receive Date: 20160125
  Receipt Date: 20160125
  Transmission Date: 20160526
  Serious: No
  Sender: FDA-Public Use
  Company Number: US-UNITED THERAPEUTICS-UNT-2015-010289

PATIENT
  Sex: Female

DRUGS (1)
  1. ORENITRAM [Suspect]
     Active Substance: TREPROSTINIL
     Indication: PRODUCT USED FOR UNKNOWN INDICATION
     Route: 048

REACTIONS (6)
  - Nausea [Unknown]
  - Oedema [Unknown]
  - Arthralgia [Unknown]
  - Vomiting [Unknown]
  - Dyspnoea [Unknown]
  - Diarrhoea [Unknown]
